FAERS Safety Report 8783454 (Version 1)
Quarter: 2012Q4

REPORT INFORMATION
  Report Type: 
  Country: US (occurrence: US)
  Receive Date: 20120913
  Receipt Date: 20120913
  Transmission Date: 20130627
  Serious: No
  Sender: FDA-Public Use
  Company Number: US-VERTEX PHARMACEUTICAL INC.-AE-2012-008551

PATIENT
  Age: 56 Year
  Sex: Male
  Weight: 69.91 kg

DRUGS (4)
  1. INCIVEK [Suspect]
     Indication: HEPATITIS C
     Route: 048
     Dates: start: 20120602, end: 20120607
  2. RIBAVIRIN [Concomitant]
     Indication: HEPATITIS C
     Dates: start: 20120602, end: 20120607
  3. PEGASYS [Concomitant]
     Indication: HEPATITIS C
     Route: 058
     Dates: start: 20120602, end: 20120607
  4. ACYCLOVIR [Concomitant]
     Indication: HERPES ZOSTER
     Route: 048

REACTIONS (9)
  - Chest pain [Unknown]
  - Chills [Not Recovered/Not Resolved]
  - Feeling abnormal [Unknown]
  - Dysstasia [Unknown]
  - Rash vesicular [Not Recovered/Not Resolved]
  - Haematochezia [Not Recovered/Not Resolved]
  - Diarrhoea [Unknown]
  - Anorectal discomfort [Not Recovered/Not Resolved]
  - Nausea [Not Recovered/Not Resolved]
